FAERS Safety Report 5683922-3 (Version None)
Quarter: 2008Q1

REPORT INFORMATION
  Report Type: 
  Country: None (occurrence: None)
  Receive Date: 20080328
  Receipt Date: 20080328
  Transmission Date: 20080703
  Serious: Yes (Other)
  Sender: FDA-Public Use
  Company Number: None

PATIENT
  Age: 49 Year
  Sex: Female
  Weight: 46.7205 kg

DRUGS (4)
  1. HEPARIN [Suspect]
     Indication: Q FEVER
     Dosage: 5ML POST FINAL SALINE; FUSH IV
     Route: 042
     Dates: start: 20080125
  2. DOXYCYCLINE [Concomitant]
  3. DIFLUCAN [Concomitant]
  4. N8 [Concomitant]

REACTIONS (3)
  - DIZZINESS [None]
  - INFLUENZA LIKE ILLNESS [None]
  - NAUSEA [None]
